FAERS Safety Report 11491612 (Version 2)
Quarter: 2015Q3

REPORT INFORMATION
  Report Type: Report from Study
  Country: ES (occurrence: ES)
  Receive Date: 20150910
  Receipt Date: 20150922
  Transmission Date: 20151125
  Serious: Yes (Other)
  Sender: FDA-Public Use
  Company Number: ES-ASTRAZENECA-2015SE66824

PATIENT
  Age: 58 Year
  Sex: Male
  Weight: 108 kg

DRUGS (3)
  1. NOVOMIX [Concomitant]
     Active Substance: INSULIN ASPART
     Indication: TYPE 2 DIABETES MELLITUS
     Dosage: 30
     Route: 058
  2. BYDUREON [Suspect]
     Active Substance: EXENATIDE
     Indication: DIABETES MELLITUS
     Dosage: 1 INJECTION/WEEK
     Route: 058
     Dates: start: 201506, end: 201508
  3. APROVEL [Concomitant]
     Active Substance: IRBESARTAN
     Indication: HYPERTENSION

REACTIONS (6)
  - Fluid retention [Recovering/Resolving]
  - Renal impairment [Unknown]
  - Injection site erythema [Recovering/Resolving]
  - Off label use [Unknown]
  - Drug dose omission [Unknown]
  - Angiopathy [Unknown]

NARRATIVE: CASE EVENT DATE: 201506
